FAERS Safety Report 24454452 (Version 2)
Quarter: 2024Q4

REPORT INFORMATION
  Report Type: Spontaneous
  Country: DE (occurrence: DE)
  Receive Date: 20241017
  Receipt Date: 20241018
  Transmission Date: 20250115
  Serious: No
  Sender: ROCHE
  Company Number: DE-BAXTER-2023BAX037093

PATIENT

DRUGS (12)
  1. RITUXIMAB [Suspect]
     Active Substance: RITUXIMAB
     Indication: Plasma cell myeloma
     Dosage: 1ST LINE
     Route: 065
  2. CARFILZOMIB [Suspect]
     Active Substance: CARFILZOMIB
     Indication: Plasma cell myeloma
     Dosage: 2ND LINE
     Route: 065
  3. BORTEZOMIB [Suspect]
     Active Substance: BORTEZOMIB
     Indication: Plasma cell myeloma
     Dosage: 1ST LINE, BRIDGING CHEMOTHERAPY, AS A PART OF VTD-PACE REGIMEN
     Route: 065
     Dates: start: 20231006
  4. DOXORUBICIN [Suspect]
     Active Substance: DOXORUBICIN
     Indication: Plasma cell myeloma
     Dosage: BRIDGING CHEMOTHERAPY, AS A PART OF VTD-PACE REGIMEN
     Route: 065
     Dates: start: 20231006
  5. CYCLOPHOSPHAMIDE [Suspect]
     Active Substance: CYCLOPHOSPHAMIDE
     Indication: Plasma cell myeloma
     Dosage: 3RD LINE, BRIDGING CHEMOTHERAPY, AS A PART OF VTD-PACE REGIMEN
     Route: 065
     Dates: start: 20231006
  6. THALIDOMIDE [Suspect]
     Active Substance: THALIDOMIDE
     Indication: Plasma cell myeloma
     Dosage: BRIDGING CHEMOTHERAPY, AS A PART OF VTD-PACE REGIMEN
     Route: 065
     Dates: start: 20231006
  7. CISPLATIN [Suspect]
     Active Substance: CISPLATIN
     Indication: Plasma cell myeloma
     Dosage: BRIDGING CHEMOTHERAPY, AS A PART OF VTD-PACE REGIMEN
     Route: 065
     Dates: start: 20231006
  8. LENALIDOMIDE [Suspect]
     Active Substance: LENALIDOMIDE
     Indication: Plasma cell myeloma
     Dosage: 2ND LINE, MAINTENANCE
     Route: 065
  9. DEXAMETHASONE [Suspect]
     Active Substance: DEXAMETHASONE
     Indication: Plasma cell myeloma
     Dosage: 1ST LIND, 2ND LINE, BRIDGING CHEMOTHERAPY, AS A PART OF VTD-PACE REGIMEN
     Route: 065
     Dates: start: 20231006
  10. ETOPOSIDE [Suspect]
     Active Substance: ETOPOSIDE
     Indication: Plasma cell myeloma
     Dosage: BRIDGING CHEMOTHERAPY, AS A PART OF VTD-PACE REGIMEN
     Route: 065
     Dates: start: 20231006
  11. MELPHALAN [Suspect]
     Active Substance: MELPHALAN
     Indication: Plasma cell myeloma
     Dosage: 2ND LINE, HIGH DOSE, ASCT
     Route: 065
  12. DARATUMUMAB [Suspect]
     Active Substance: DARATUMUMAB
     Indication: Plasma cell myeloma
     Dosage: 2ND LINE
     Route: 065

REACTIONS (1)
  - Therapy partial responder [Unknown]
